FAERS Safety Report 7029418-8 (Version None)
Quarter: 2010Q4

REPORT INFORMATION
  Report Type: 
  Country: None (occurrence: None)
  Receive Date: 20101005
  Receipt Date: 20100930
  Transmission Date: 20110411
  Serious: Yes (Death, Hospitalization, Other)
  Sender: FDA-Public Use
  Company Number: PHHY2010MX28402

PATIENT
  Sex: Female

DRUGS (1)
  1. ZOMETA [Suspect]
     Indication: NEOPLASM MALIGNANT
     Dosage: 4 MG PER 5 ML PER MONTH
     Route: 042
     Dates: start: 20060601, end: 20080601

REACTIONS (7)
  - FEMUR FRACTURE [None]
  - HEPATIC FAILURE [None]
  - METASTASES TO CENTRAL NERVOUS SYSTEM [None]
  - METASTASES TO LIVER [None]
  - MULTI-ORGAN FAILURE [None]
  - PROSTHESIS IMPLANTATION [None]
  - RESPIRATORY ARREST [None]
